FAERS Safety Report 6767712-6 (Version None)
Quarter: 2010Q2

REPORT INFORMATION
  Report Type: 
  Country: None (occurrence: None)
  Receive Date: 20100614
  Receipt Date: 20100607
  Transmission Date: 20101027
  Serious: Yes (Hospitalization)
  Sender: FDA-Public Use
  Company Number: BR-ROCHE-700337

PATIENT
  Age: 70 Year
  Sex: Male

DRUGS (1)
  1. XELODA [Suspect]
     Indication: COLON CANCER
     Dosage: RECEIVED FIRST CYCLE FOR 14 DAYS. STOP DATE: 2010.
     Route: 065
     Dates: start: 20100401

REACTIONS (8)
  - BILIARY DRAINAGE [None]
  - DIARRHOEA [None]
  - DRUG INTOLERANCE [None]
  - GENERAL PHYSICAL HEALTH DETERIORATION [None]
  - HICCUPS [None]
  - ILL-DEFINED DISORDER [None]
  - SKIN EXFOLIATION [None]
  - VOMITING [None]
